FAERS Safety Report 6063648-7 (Version None)
Quarter: 2009Q1

REPORT INFORMATION
  Report Type: 
  Country: None (occurrence: None)
  Receive Date: 20090129
  Receipt Date: 20090116
  Transmission Date: 20090719
  Serious: Yes (Other)
  Sender: FDA-Public Use
  Company Number: 2009S1000298

PATIENT
  Age: 42 Year
  Sex: Male
  Weight: 88.4514 kg

DRUGS (3)
  1. LEVETIRACETAM [Suspect]
     Indication: CONVULSION
     Dosage: 500 MG; DAILY; ORAL
     Route: 048
     Dates: start: 20081230, end: 20081231
  2. LEVETIRACETAM [Suspect]
     Indication: CONVULSION
     Dosage: 500 MG; DAILY; ORAL
     Route: 048
     Dates: start: 20090101
  3. VICODIN [Concomitant]

REACTIONS (33)
  - AGGRESSION [None]
  - AMNESIA [None]
  - ANOREXIA [None]
  - ANXIETY [None]
  - ASTHENIA [None]
  - BALANCE DISORDER [None]
  - CONVULSION [None]
  - CRYING [None]
  - DEPRESSION [None]
  - DRY MOUTH [None]
  - DYSPNOEA [None]
  - ERECTILE DYSFUNCTION [None]
  - ERYTHEMA [None]
  - FALL [None]
  - HEADACHE [None]
  - HEART RATE INCREASED [None]
  - HYPERHIDROSIS [None]
  - HYPERTENSION [None]
  - HYPOAESTHESIA [None]
  - INSOMNIA [None]
  - LACRIMATION INCREASED [None]
  - LIBIDO DECREASED [None]
  - NEGATIVE THOUGHTS [None]
  - NIGHTMARE [None]
  - OCULAR HYPERAEMIA [None]
  - PAIN [None]
  - PANIC ATTACK [None]
  - PENILE DISCHARGE [None]
  - PRODUCT QUALITY ISSUE [None]
  - SOMNOLENCE [None]
  - SPINAL CORD DISORDER [None]
  - SUICIDAL IDEATION [None]
  - VOMITING [None]
